FAERS Safety Report 13328396 (Version 1)
Quarter: 2017Q1

REPORT INFORMATION
  Report Type: Spontaneous
  Country: US (occurrence: US)
  Receive Date: 20170313
  Receipt Date: 20170313
  Transmission Date: 20170428
  Serious: No
  Sender: FDA-Public Use
  Company Number: US-JNJFOC-20170103812

PATIENT
  Age: 79 Year
  Sex: Female
  Weight: 76.2 kg

DRUGS (2)
  1. PERSANTINE [Concomitant]
     Active Substance: DIPYRIDAMOLE
     Indication: MUSCULOSKELETAL DISORDER
     Route: 065
  2. SUDAFED NASAL DECONGESTANT MAXIMUM STRENGTH [Suspect]
     Active Substance: PSEUDOEPHEDRINE HYDROCHLORIDE
     Indication: PRODUCT USED FOR UNKNOWN INDICATION
     Route: 048

REACTIONS (3)
  - Product expiration date issue [Unknown]
  - Pruritus [Unknown]
  - Rash [Unknown]
